FAERS Safety Report 19651018 (Version 2)
Quarter: 2021Q3

REPORT INFORMATION
  Report Type: Report from Study
  Country: None (occurrence: CA)
  Receive Date: 20210802
  Receipt Date: 20210823
  Transmission Date: 20211014
  Serious: Yes (Hospitalization)
  Sender: FDA-Public Use
  Company Number: CA-ABBVIE-21K-028-4005359-00

PATIENT
  Age: 71 Year
  Sex: Female
  Weight: 61.5 kg

DRUGS (1)
  1. SKYRIZI [Suspect]
     Active Substance: RISANKIZUMAB-RZAA
     Indication: PSORIASIS
     Route: 058
     Dates: start: 20201019, end: 20210503

REACTIONS (3)
  - Wound infection [Recovered/Resolved]
  - Injury [Recovering/Resolving]
  - Exposure to toxic agent [Unknown]

NARRATIVE: CASE EVENT DATE: 202107
